FAERS Safety Report 9342912 (Version 2)
Quarter: 2013Q2

REPORT INFORMATION
  Report Type: Spontaneous
  Country: DE (occurrence: DE)
  Receive Date: 20130607
  Receipt Date: 20130607
  Transmission Date: 20140414
  Serious: Yes (Other)
  Sender: FDA-Public Use
  Company Number: 7215270

PATIENT
  Age: 57 Year
  Sex: Female

DRUGS (2)
  1. EUTHYROX [Suspect]
     Indication: AUTOIMMUNE THYROIDITIS
     Route: 048
     Dates: start: 2011
  2. FEMOSTON CONTI [Suspect]
     Indication: HORMONE REPLACEMENT THERAPY
     Route: 048
     Dates: start: 2003, end: 201304

REACTIONS (7)
  - Haemorrhage [None]
  - Tachycardia [None]
  - Condition aggravated [None]
  - Restlessness [None]
  - Insomnia [None]
  - Drug interaction [None]
  - Overdose [None]
